FAERS Safety Report 11349304 (Version 1)
Quarter: 2015Q3

REPORT INFORMATION
  Report Type: Spontaneous
  Country: US (occurrence: US)
  Receive Date: 20150807
  Receipt Date: 20150807
  Transmission Date: 20151125
  Serious: No
  Sender: FDA-Public Use
  Company Number: US-AMGEN-USASP2015078330

PATIENT
  Age: 38 Year
  Sex: Female

DRUGS (3)
  1. ORENCIA [Suspect]
     Active Substance: ABATACEPT
     Indication: PRODUCT USED FOR UNKNOWN INDICATION
     Dosage: UNK
     Route: 065
  2. ENBREL [Suspect]
     Active Substance: ETANERCEPT
     Indication: RHEUMATOID ARTHRITIS
     Dosage: UNK
     Route: 065
  3. XELJANZ [Suspect]
     Active Substance: TOFACITINIB CITRATE
     Indication: RHEUMATOID ARTHRITIS
     Dosage: 5 MG TABLET, BID
     Route: 065
     Dates: start: 201503, end: 201506

REACTIONS (5)
  - Abdominal discomfort [Recovered/Resolved]
  - Nervous system disorder [Unknown]
  - Nausea [Recovered/Resolved]
  - Drug ineffective [Unknown]
  - Paraesthesia [Recovered/Resolved]
